FAERS Safety Report 9580010 (Version 1)
Quarter: 2013Q3

REPORT INFORMATION
  Report Type: Spontaneous
  Country: US (occurrence: None)
  Receive Date: 20130916
  Receipt Date: 20130916
  Transmission Date: 20140515
  Serious: Yes (Hospitalization)
  Sender: FDA-Public Use
  Company Number: JPI-P-023379

PATIENT
  Age: 56 Year
  Sex: Male
  Weight: 90.72 kg

DRUGS (6)
  1. XYREM [Suspect]
     Indication: SOMNOLENCE
     Route: 048
     Dates: start: 20070219
  2. CLOPIDOGREL BISULFATE [Concomitant]
  3. ATORVASTATIN CALCIUM [Concomitant]
  4. CELECOXIB [Concomitant]
  5. ARMODAFINIL [Concomitant]
  6. METOPROLOL [Concomitant]

REACTIONS (3)
  - Condition aggravated [None]
  - Procedural pain [None]
  - Arthritis [None]
